FAERS Safety Report 24445185 (Version 1)
Quarter: 2024Q4

REPORT INFORMATION
  Report Type: Spontaneous
  Country: FR (occurrence: FR)
  Receive Date: 20241016
  Receipt Date: 20241016
  Transmission Date: 20250114
  Serious: Yes (Other)
  Sender: MYLAN
  Company Number: None

PATIENT
  Age: 36 Year
  Sex: Male
  Weight: 82 kg

DRUGS (3)
  1. EFFEXOR [Suspect]
     Active Substance: VENLAFAXINE HYDROCHLORIDE
     Indication: Psoriatic arthropathy
     Dosage: UNK
     Route: 065
  2. TREMFYA [Suspect]
     Active Substance: GUSELKUMAB
     Indication: Psoriatic arthropathy
     Dosage: 1 DOSAGE FORM, BIMONTHLY (PARENTERAL)
     Route: 065
     Dates: start: 202302
  3. SECUKINUMAB [Suspect]
     Active Substance: SECUKINUMAB
     Indication: Psoriatic arthropathy
     Dosage: 150 MILLIGRAM, CYCLE (PARENTERAL)
     Route: 065
     Dates: start: 202106, end: 202302

REACTIONS (1)
  - Metabolic dysfunction-associated steatohepatitis [Not Recovered/Not Resolved]

NARRATIVE: CASE EVENT DATE: 20240620
